FAERS Safety Report 6083826-0 (Version None)
Quarter: 2009Q1

REPORT INFORMATION
  Report Type: 
  Country: None (occurrence: None)
  Receive Date: 20090219
  Receipt Date: 20090205
  Transmission Date: 20090719
  Serious: Yes (Hospitalization, Other)
  Sender: FDA-Public Use
  Company Number: US-ELI_LILLY_AND_COMPANY-US200811002857

PATIENT
  Age: 88 Year
  Sex: Female

DRUGS (7)
  1. FORTEO [Suspect]
     Indication: OSTEOPOROSIS
     Dosage: 20 UG, DAILY (1/D)
     Dates: start: 20070301
  2. PAXIL CR [Concomitant]
  3. REQUIP [Concomitant]
  4. STALEVO 100 [Concomitant]
  5. CENTRUM SILVER [Concomitant]
  6. CALCIUM D [Concomitant]
  7. MAGNESIUM SULFATE [Concomitant]

REACTIONS (3)
  - FALL [None]
  - FEMUR FRACTURE [None]
  - POST PROCEDURAL COMPLICATION [None]
